FAERS Safety Report 18280327 (Version 1)
Quarter: 2020Q3

REPORT INFORMATION
  Report Type: Spontaneous
  Country: FR (occurrence: FR)
  Receive Date: 20200918
  Receipt Date: 20200918
  Transmission Date: 20201103
  Serious: Yes (Hospitalization)
  Sender: FDA-Public Use
  Company Number: FR-ASTRAZENECA-2020SF17960

PATIENT
  Age: 82 Year
  Sex: Male
  Weight: 81 kg

DRUGS (11)
  1. PREVISCAN [Concomitant]
     Route: 048
  2. MECIR L.P. [Concomitant]
     Active Substance: TAMSULOSIN HYDROCHLORIDE
     Route: 048
  3. SPIRIVA [Concomitant]
     Active Substance: TIOTROPIUM BROMIDE MONOHYDRATE
     Route: 055
  4. AERIUS [Concomitant]
     Route: 048
  5. INNOVAIR [Concomitant]
     Active Substance: BECLOMETHASONE DIPROPIONATE\FORMOTEROL
     Route: 055
  6. BRICANYL [Concomitant]
     Active Substance: TERBUTALINE SULFATE
     Route: 055
  7. RAMIPRIL. [Concomitant]
     Active Substance: RAMIPRIL
     Route: 048
  8. AVODART [Concomitant]
     Active Substance: DUTASTERIDE
     Route: 048
  9. CRESTOR [Concomitant]
     Active Substance: ROSUVASTATIN CALCIUM
     Dosage: 0.5DF UNKNOWN
     Route: 048
  10. FASENRA [Suspect]
     Active Substance: BENRALIZUMAB
     Indication: ASTHMA
     Route: 058
     Dates: start: 20200710, end: 20200710
  11. ATROVENT [Concomitant]
     Active Substance: IPRATROPIUM BROMIDE
     Route: 055

REACTIONS (1)
  - Hyperthermia [Recovered/Resolved]

NARRATIVE: CASE EVENT DATE: 20200710
